APPROVED DRUG PRODUCT: LAZCLUZE
Active Ingredient: LAZERTINIB MESYLATE
Strength: EQ 240MG BASE
Dosage Form/Route: TABLET;ORAL
Application: N219008 | Product #002
Applicant: JANSSEN BIOTECH INC
Approved: Aug 19, 2024 | RLD: Yes | RS: Yes | Type: RX

PATENTS:
Patent 9593098 | Expires: Oct 13, 2035
Patent 11981659 | Expires: Apr 18, 2038
Patent 11850248 | Expires: Aug 1, 2041
Patent 11879013 | Expires: May 21, 2040
Patent 12318390 | Expires: Apr 18, 2038
Patent 11453656 | Expires: Apr 18, 2038
Patent 12138351 | Expires: Apr 13, 2041

EXCLUSIVITY:
Code: NCE | Date: Aug 19, 2029